FAERS Safety Report 25278895 (Version 2)
Quarter: 2025Q3

REPORT INFORMATION
  Report Type: Spontaneous
  Country: US (occurrence: US)
  Receive Date: 20250507
  Receipt Date: 20250702
  Transmission Date: 20251020
  Serious: Yes (Other)
  Sender: PFIZER
  Company Number: US-PFIZER INC-202500094801

PATIENT
  Age: 64 Year
  Sex: Female

DRUGS (15)
  1. XELJANZ XR [Suspect]
     Active Substance: TOFACITINIB CITRATE
     Dosage: 11 MG, 1X/DAY
     Route: 048
     Dates: start: 202207
  2. ACYCLOVIR [Concomitant]
     Active Substance: ACYCLOVIR
  3. ALENDRONATE SODIUM [Concomitant]
     Active Substance: ALENDRONATE SODIUM
  4. CALCIUM [Concomitant]
     Active Substance: CALCIUM
  5. CYCLOBENZAPRINE HYDROCHLORIDE [Concomitant]
     Active Substance: CYCLOBENZAPRINE HYDROCHLORIDE
  6. CYCLOSPORINE [Concomitant]
     Active Substance: CYCLOSPORINE
  7. IBU [Concomitant]
     Active Substance: IBUPROFEN
  8. PREDNISOLONE SODIUM PHOS [Concomitant]
  9. TRAMADOL HCL [Concomitant]
     Active Substance: TRAMADOL HYDROCHLORIDE
  10. VITAMIN D3 [Concomitant]
     Active Substance: CHOLECALCIFEROL
  11. TRAMADOL [Concomitant]
     Active Substance: TRAMADOL
  12. CYCLOBENZAPRINE [Concomitant]
     Active Substance: CYCLOBENZAPRINE
  13. IBUPROFEN [Concomitant]
     Active Substance: IBUPROFEN
  14. ALENDRONATE [Concomitant]
     Active Substance: ALENDRONATE SODIUM
  15. NEPAFENAC/PREDNISOLONE [Concomitant]

REACTIONS (1)
  - Femur fracture [Not Recovered/Not Resolved]

NARRATIVE: CASE EVENT DATE: 20241127
